FAERS Safety Report 21192945 (Version 1)
Quarter: 2022Q3

REPORT INFORMATION
  Report Type: Spontaneous
  Country: US (occurrence: US)
  Receive Date: 20220810
  Receipt Date: 20220810
  Transmission Date: 20221026
  Serious: Yes (Other)
  Sender: FDA-Public Use
  Company Number: US-SA-2022SA322061

PATIENT
  Age: 86 Year
  Sex: Male

DRUGS (1)
  1. CERDELGA [Suspect]
     Active Substance: ELIGLUSTAT
     Indication: Lipid metabolism disorder
     Dosage: 84 MG, BID
     Route: 048
     Dates: start: 20160624

REACTIONS (2)
  - Diabetes mellitus [Unknown]
  - Infection [Unknown]
